FAERS Safety Report 12852487 (Version 1)
Quarter: 2016Q4

REPORT INFORMATION
  Report Type: Spontaneous
  Country: CA (occurrence: CA)
  Receive Date: 20161017
  Receipt Date: 20161017
  Transmission Date: 20170207
  Serious: Yes (Other)
  Sender: FDA-Public Use
  Company Number: CA-SUN PHARMACEUTICAL INDUSTRIES LTD-2016US-126183

PATIENT
  Age: 50 Year
  Sex: Male

DRUGS (10)
  1. ETOPOSIDE. [Suspect]
     Active Substance: ETOPOSIDE
     Indication: PULMONARY MASS
     Dosage: 3 CYCLES
     Route: 065
  2. STREPTOZOCIN [Suspect]
     Active Substance: STREPTOZOCIN
     Indication: HEPATIC LESION
  3. DOXORUBICIN [Suspect]
     Active Substance: DOXORUBICIN
     Indication: HEPATIC LESION
     Dosage: 3 CYCLES
     Route: 065
  4. SUNITINIB [Suspect]
     Active Substance: SUNITINIB
     Indication: HEPATIC LESION
     Dosage: UNK
     Route: 065
  5. CISPLATIN. [Suspect]
     Active Substance: CISPLATIN
     Indication: HEPATIC LESION
  6. STREPTOZOCIN [Suspect]
     Active Substance: STREPTOZOCIN
     Indication: PULMONARY MASS
     Dosage: UNK
     Route: 065
  7. CISPLATIN. [Suspect]
     Active Substance: CISPLATIN
     Indication: PULMONARY MASS
     Dosage: 3 CYCLES
     Route: 065
  8. ETOPOSIDE. [Suspect]
     Active Substance: ETOPOSIDE
     Indication: HEPATIC LESION
  9. DOXORUBICIN [Suspect]
     Active Substance: DOXORUBICIN
     Indication: PULMONARY MASS
  10. SUNITINIB [Suspect]
     Active Substance: SUNITINIB
     Indication: PULMONARY MASS

REACTIONS (1)
  - Treatment failure [Unknown]
